FAERS Safety Report 7414790-7 (Version None)
Quarter: 2011Q2

REPORT INFORMATION
  Report Type: 
  Country: None (occurrence: None)
  Receive Date: 20110414
  Receipt Date: 20110406
  Transmission Date: 20111010
  Serious: Yes (Hospitalization, Other)
  Sender: FDA-Public Use
  Company Number: JP-PFIZER INC-2011075673

PATIENT
  Age: 6 Year
  Sex: Male
  Weight: 22 kg

DRUGS (2)
  1. PREDONINE [Suspect]
     Indication: HENOCH-SCHONLEIN PURPURA
     Dosage: 2 MG/KG, UNK
     Route: 042
  2. METHYLPREDNISOLONE SODIUM SUCCINATE [Suspect]
     Indication: HENOCH-SCHONLEIN PURPURA
     Dosage: UNK

REACTIONS (1)
  - CYTOMEGALOVIRUS ENTEROCOLITIS [None]
